FAERS Safety Report 9361553 (Version 3)
Quarter: 2013Q3

REPORT INFORMATION
  Report Type: Report from Study
  Country: US (occurrence: US)
  Receive Date: 20130621
  Receipt Date: 20130925
  Transmission Date: 20140515
  Serious: Yes (Hospitalization)
  Sender: FDA-Public Use
  Company Number: US-US-EMD SERONO, INC.-7218411

PATIENT
  Age: 77 Year
  Sex: Female

DRUGS (1)
  1. REBIF [Suspect]
     Indication: MULTIPLE SCLEROSIS
     Route: 058
     Dates: start: 20130416, end: 201308

REACTIONS (9)
  - Dyspnoea [Unknown]
  - Hypertension [Recovered/Resolved]
  - Loss of consciousness [Unknown]
  - Multiple sclerosis relapse [Recovered/Resolved]
  - Head injury [Unknown]
  - Hypokinesia [Not Recovered/Not Resolved]
  - Fall [Unknown]
  - Malaise [Not Recovered/Not Resolved]
  - Injection site erythema [Not Recovered/Not Resolved]
